FAERS Safety Report 5060950-2 (Version None)
Quarter: 2006Q3

REPORT INFORMATION
  Report Type: 
  Country: None (occurrence: None)
  Receive Date: 20060720
  Receipt Date: 20060710
  Transmission Date: 20061208
  Serious: Yes (Death)
  Sender: FDA-Public Use
  Company Number: CHPA2006US00717

PATIENT
  Age: 58 Year
  Sex: Female
  Weight: 101.1 kg

DRUGS (16)
  1. EXCEDRIN (MIGRAINE) [Suspect]
     Indication: MIGRAINE
     Dosage: 250 MG PRN ORAL
     Route: 048
     Dates: start: 19851111
  2. CARISOPRODOL [Concomitant]
  3. HYDROCODONE BITARTRATE + ACETAMINOPHEN [Concomitant]
  4. TRAMADOL [Concomitant]
  5. ASPIRIN TAB [Concomitant]
  6. MORPHINE [Concomitant]
  7. METHOCARBAMOL [Concomitant]
  8. XYLOCAINE [Concomitant]
  9. CORTISONE [Concomitant]
  10. SUMATRIPTAN SUCCINATE [Concomitant]
  11. FEXOFENADINE [Concomitant]
  12. DIPHENHYDRAMINE HCL [Concomitant]
  13. HYDROCODONE [Concomitant]
  14. ALL OTHER THERAPEUTIC PRODUCTS (NO INGREDIENTS/SUBSTANCES) [Concomitant]
  15. CALCIUM GLUCONATE [Concomitant]
  16. IMITREX ^GLAXO WELLCOME^ (SUMATRIPTAN SUCCINATE) [Concomitant]

REACTIONS (6)
  - BACK PAIN [None]
  - GASTROINTESTINAL DISORDER [None]
  - GASTROINTESTINAL NECROSIS [None]
  - MUSCLE SPASMS [None]
  - NASOPHARYNGITIS [None]
  - NECK PAIN [None]
